FAERS Safety Report 8198794-5 (Version None)
Quarter: 2012Q1

REPORT INFORMATION
  Report Type: 
  Country: None (occurrence: None)
  Receive Date: 20120309
  Receipt Date: 20120210
  Transmission Date: 20120608
  Serious: No
  Sender: FDA-Public Use
  Company Number: US-AMGEN-USASP2012006789

PATIENT
  Sex: Male
  Weight: 78 kg

DRUGS (14)
  1. COMEDROL [Concomitant]
     Dosage: 6.25 UNK, UNK
  2. TESSALON [Concomitant]
     Dosage: 100 MG, TID
  3. ISOSORBIDE DINITRATE [Concomitant]
     Dosage: 30 MG, QD
  4. OMEPRAZOLE [Concomitant]
     Dosage: 40 MG, QD
  5. HYDROXYZINE [Concomitant]
     Dosage: 25 MG, TID
  6. VITAMIN D [Concomitant]
  7. PROLIA [Suspect]
     Indication: OSTEOPOROSIS
     Dosage: 60 MG, UNK
     Route: 058
     Dates: start: 20120111
  8. ASPIRIN [Concomitant]
     Dosage: 81 MG, QD
  9. NORVASC [Concomitant]
     Dosage: 5 MG, QD
  10. HYDROCHLOROTHIAZIDE [Concomitant]
     Dosage: 12.5 MG, QD
  11. LEXAPRO [Concomitant]
     Dosage: 10 MG, QD
  12. TORSEMIDE [Concomitant]
     Dosage: 20 MG, QD
  13. VITAMIN B-12 [Concomitant]
     Dosage: 2000 MG, QD
  14. PRAVACHOL [Concomitant]
     Dosage: 40 MG, QD

REACTIONS (2)
  - RASH PRURITIC [None]
  - RASH GENERALISED [None]
